FAERS Safety Report 20224732 (Version 2)
Quarter: 2022Q1

REPORT INFORMATION
  Report Type: Spontaneous
  Country: US (occurrence: US)
  Receive Date: 20211223
  Receipt Date: 20220113
  Transmission Date: 20220423
  Serious: Yes (Life-Threatening, Hospitalization)
  Sender: FDA-Public Use
  Company Number: US-TEVA-2021-US-1989705

PATIENT
  Age: 36 Year
  Sex: Female

DRUGS (1)
  1. IBUPROFEN [Suspect]
     Active Substance: IBUPROFEN
     Indication: Oropharyngeal pain
     Route: 065

REACTIONS (6)
  - Stevens-Johnson syndrome [Recovering/Resolving]
  - Intestinal ischaemia [Recovering/Resolving]
  - Abdominal abscess [Unknown]
  - Pelvic abscess [Unknown]
  - Respiratory failure [Recovering/Resolving]
  - Enteritis [Unknown]
